FAERS Safety Report 7034840-X (Version None)
Quarter: 2010Q4

REPORT INFORMATION
  Report Type: 
  Country: None (occurrence: None)
  Receive Date: 20101008
  Receipt Date: 20100928
  Transmission Date: 20110411
  Serious: Yes (Hospitalization)
  Sender: FDA-Public Use
  Company Number: BR-ROCHE-724053

PATIENT
  Sex: Female
  Weight: 60 kg

DRUGS (6)
  1. TOCILIZUMAB [Suspect]
     Indication: RHEUMATOID ARTHRITIS
     Dosage: FORM; INFUSION
     Route: 042
     Dates: start: 20100625, end: 20100625
  2. TOCILIZUMAB [Suspect]
     Route: 042
     Dates: start: 20100728
  3. ALENDRONATE SODIUM [Concomitant]
  4. METHOTREXATE [Concomitant]
  5. SOLU-MEDROL [Concomitant]
  6. RIVOTRIL [Concomitant]

REACTIONS (2)
  - HEADACHE [None]
  - INTRACRANIAL ANEURYSM [None]
